FAERS Safety Report 11370602 (Version 1)
Quarter: 2015Q3

REPORT INFORMATION
  Report Type: Spontaneous
  Country: US (occurrence: US)
  Receive Date: 20150812
  Receipt Date: 20150812
  Transmission Date: 20151125
  Serious: No
  Sender: FDA-Public Use
  Company Number: US-BIOGENIDEC-2015BI111842

PATIENT
  Sex: Male

DRUGS (1)
  1. TECFIDERA [Suspect]
     Active Substance: DIMETHYL FUMARATE
     Indication: PRODUCT USED FOR UNKNOWN INDICATION
     Dates: start: 20150723

REACTIONS (6)
  - Vomiting [Unknown]
  - Constipation [Unknown]
  - Chills [Unknown]
  - Food poisoning [Not Recovered/Not Resolved]
  - Gastrointestinal disorder [Unknown]
  - Hyperhidrosis [Unknown]
